FAERS Safety Report 4781240-9 (Version None)
Quarter: 2005Q3

REPORT INFORMATION
  Report Type: 
  Country: None (occurrence: None)
  Receive Date: 20050914
  Receipt Date: 20050106
  Transmission Date: 20060218
  Serious: Yes (Death, Hospitalization, Other)
  Sender: FDA-Public Use
  Company Number: 163-20785-05010145

PATIENT
  Age: 60 Year
  Sex: Male

DRUGS (1)
  1. THALOMID [Suspect]
     Indication: MALIGNANT MELANOMA
     Dosage: 100 MG, QHS, ORAL
     Route: 048
     Dates: start: 20040728, end: 20040913

REACTIONS (6)
  - ANAEMIA [None]
  - CARDIAC FAILURE CONGESTIVE [None]
  - CHEST PAIN [None]
  - DEATH [None]
  - DISEASE PROGRESSION [None]
  - NAUSEA [None]
